FAERS Safety Report 12346415 (Version 1)
Quarter: 2016Q2

REPORT INFORMATION
  Report Type: Spontaneous
  Country: JP (occurrence: JP)
  Receive Date: 20160509
  Receipt Date: 20160509
  Transmission Date: 20160815
  Serious: Yes (Hospitalization)
  Sender: FDA-Public Use
  Company Number: JP-ROCHE-1754257

PATIENT
  Age: 58 Year
  Sex: Female

DRUGS (3)
  1. COPEGUS [Suspect]
     Active Substance: RIBAVIRIN
     Indication: PRODUCT USED FOR UNKNOWN INDICATION
     Dosage: IN THE MORNING: 1 TABLET, IN THE EVENING: 2 TABLETS
     Route: 048
     Dates: start: 20160316, end: 20160330
  2. COPEGUS [Suspect]
     Active Substance: RIBAVIRIN
     Dosage: IN THE MORNING WITHOUT TAKING, IN THE EVENING: 2 TABLETS
     Route: 048
     Dates: start: 20160330
  3. SOVALDI [Suspect]
     Active Substance: SOFOSBUVIR
     Indication: CHRONIC HEPATITIS C
     Dosage: ADMINISTERING IN MORNING
     Route: 048
     Dates: start: 20160316

REACTIONS (3)
  - Femoral neck fracture [Unknown]
  - Fall [Unknown]
  - Anaemia [Not Recovered/Not Resolved]

NARRATIVE: CASE EVENT DATE: 20160321
